FAERS Safety Report 25151166 (Version 1)
Quarter: 2025Q2

REPORT INFORMATION
  Report Type: Spontaneous
  Country: US (occurrence: US)
  Receive Date: 20250402
  Receipt Date: 20250402
  Transmission Date: 20250717
  Serious: No
  Sender: Kenvue
  Company Number: US-KENVUE-20250302860

PATIENT
  Age: 18 Year
  Sex: Female
  Weight: 47.62 kg

DRUGS (1)
  1. CHILDRENS MOTRIN [Suspect]
     Active Substance: IBUPROFEN
     Indication: Influenza
     Route: 065

REACTIONS (1)
  - Off label use [Unknown]
